FAERS Safety Report 8247583-1 (Version None)
Quarter: 2012Q1

REPORT INFORMATION
  Report Type: 
  Country: None (occurrence: None)
  Receive Date: 20120330
  Receipt Date: 20120322
  Transmission Date: 20120608
  Serious: Yes (Hospitalization)
  Sender: FDA-Public Use
  Company Number: US-ELI_LILLY_AND_COMPANY-US201202005497

PATIENT
  Sex: Female
  Weight: 63.49 kg

DRUGS (27)
  1. FORTEO [Suspect]
     Dosage: 20 UG, QD
     Route: 058
     Dates: start: 20110603
  2. INSULIN [Concomitant]
     Indication: DIABETES MELLITUS
  3. GLUCOTROL [Concomitant]
  4. IMDUR [Concomitant]
  5. MICRO-K [Concomitant]
  6. NIFEDIPINE [Concomitant]
  7. PROCARDIA                          /00340701/ [Concomitant]
  8. TOPROL-XL [Concomitant]
  9. FORTEO [Suspect]
     Indication: OSTEOPOROSIS
     Dosage: 20 UG, QD
     Route: 058
     Dates: start: 20080101
  10. CITRACAL + D [Concomitant]
  11. CATAPRES                           /00171101/ [Concomitant]
  12. LOVASTATIN [Concomitant]
  13. VITAMIN D [Concomitant]
  14. VITAMIN E                            /001105/ [Concomitant]
  15. CRANBERRY [Concomitant]
  16. LASIX [Concomitant]
  17. MULTI-VITAMIN [Concomitant]
  18. NITROGLYCERIN [Concomitant]
     Dosage: UNK UNK, OTHER
  19. LEVOTHYROXINE SODIUM [Concomitant]
  20. ASPIRIN [Concomitant]
     Dosage: 81 MG, UNK
  21. DIOVAN [Concomitant]
  22. CLONIDINE [Concomitant]
  23. LANTUS [Concomitant]
     Indication: DIABETES MELLITUS
  24. CARAFATE [Concomitant]
  25. COUMADIN [Concomitant]
     Dosage: 3 MG, UNK
  26. PROPAFENONE HCL [Concomitant]
  27. TEKTURNA [Concomitant]

REACTIONS (5)
  - PATELLA FRACTURE [None]
  - HUMERUS FRACTURE [None]
  - RENAL CYST [None]
  - FALL [None]
  - UPPER LIMB FRACTURE [None]
